FAERS Safety Report 12775434 (Version 1)
Quarter: 2016Q3

REPORT INFORMATION
  Report Type: Spontaneous
  Country: US (occurrence: US)
  Receive Date: 20160920
  Receipt Date: 20160920
  Transmission Date: 20161109
  Serious: Yes (Hospitalization)
  Sender: FDA-Public Use
  Company Number: None

PATIENT
  Age: 73 Year
  Sex: Male
  Weight: 76.7 kg

DRUGS (2)
  1. 5-FLUOROURACIL (5-FU) [Suspect]
     Active Substance: FLUOROURACIL
     Dates: end: 20151019
  2. ELOXATIN [Suspect]
     Active Substance: OXALIPLATIN
     Dates: end: 20151019

REACTIONS (1)
  - Renal failure [None]

NARRATIVE: CASE EVENT DATE: 20151105
